FAERS Safety Report 18474071 (Version 1)
Quarter: 2020Q4

REPORT INFORMATION
  Report Type: Spontaneous
  Country: US (occurrence: US)
  Receive Date: 20201106
  Receipt Date: 20201106
  Transmission Date: 20210114
  Serious: Yes (Other)
  Sender: FDA-Public Use
  Company Number: None

PATIENT
  Age: 61 Year
  Sex: Female
  Weight: 129.27 kg

DRUGS (14)
  1. LOSARTAN. [Concomitant]
     Active Substance: LOSARTAN
  2. VITAMIN D3 [Concomitant]
     Active Substance: CHOLECALCIFEROL
  3. ALLEGRA [Concomitant]
     Active Substance: FEXOFENADINE HYDROCHLORIDE
  4. BABY ASPIRIN [Concomitant]
     Active Substance: ASPIRIN
  5. FLONASE [Concomitant]
     Active Substance: FLUTICASONE PROPIONATE
  6. CLODERM [Suspect]
     Active Substance: CLOCORTOLONE PIVALATE
  7. ACIPHEX [Concomitant]
     Active Substance: RABEPRAZOLE SODIUM
  8. AZELASTINE. [Concomitant]
     Active Substance: AZELASTINE HYDROCHLORIDE
  9. FREESTYLE LIBRE 14 DAY [DEVICE] [Suspect]
     Active Substance: DEVICE
  10. SYMBICORT PM [Concomitant]
  11. VENTOLIN PM [Concomitant]
  12. LANTUS [Concomitant]
     Active Substance: INSULIN GLARGINE
  13. VITAMIN C [Concomitant]
     Active Substance: ASCORBIC ACID
  14. HUMALOG [Concomitant]
     Active Substance: INSULIN LISPRO

REACTIONS (4)
  - Dermatitis contact [None]
  - Skin irritation [None]
  - Application site pruritus [None]
  - Erythema [None]

NARRATIVE: CASE EVENT DATE: 20200828
